FAERS Safety Report 8411437 (Version 3)
Quarter: 2013Q2

REPORT INFORMATION
  Report Type: Spontaneous
  Country: US (occurrence: US)
  Receive Date: 20120217
  Receipt Date: 20130613
  Transmission Date: 20140414
  Serious: No
  Sender: FDA-Public Use
  Company Number: US-BAYER-2012-015768

PATIENT
  Sex: 0

DRUGS (4)
  1. GADAVIST [Suspect]
     Dosage: UNK
  2. GADAVIST [Suspect]
  3. GADAVIST [Suspect]
  4. GADAVIST [Suspect]

REACTIONS (1)
  - Urticaria [Recovered/Resolved]
